FAERS Safety Report 9034962 (Version 1)
Quarter: 2013Q1

REPORT INFORMATION
  Report Type: Report from Study
  Country: US (occurrence: US)
  Receive Date: 20130129
  Receipt Date: 20130129
  Transmission Date: 20140127
  Serious: No
  Sender: FDA-Public Use
  Company Number: US-ABBOTT-12P-163-0893111-00

PATIENT
  Age: 64 Year
  Sex: Male

DRUGS (15)
  1. HUMIRA 40 MG/0.8 ML PEN [Suspect]
     Indication: RHEUMATOID ARTHRITIS
     Dates: start: 201111
  2. PREDNISONE [Suspect]
     Indication: PRODUCT USED FOR UNKNOWN INDICATION
  3. PREDNISONE [Suspect]
  4. PROTONIX [Concomitant]
     Indication: COLITIS
  5. COLAZAL [Concomitant]
     Indication: PRODUCT USED FOR UNKNOWN INDICATION
  6. COZAAR [Concomitant]
     Indication: PRODUCT USED FOR UNKNOWN INDICATION
  7. LIPITOR [Concomitant]
     Indication: PRODUCT USED FOR UNKNOWN INDICATION
  8. HYOSCYAMINE [Concomitant]
     Indication: PRODUCT USED FOR UNKNOWN INDICATION
     Dosage: 0.125 MG/0.375 MG ALTERNATING AS NEEDED
  9. IMODIUM [Concomitant]
     Indication: PRODUCT USED FOR UNKNOWN INDICATION
  10. BABY ASPIRIN [Concomitant]
     Indication: PRODUCT USED FOR UNKNOWN INDICATION
  11. MULTIVITAMIN [Concomitant]
     Indication: PRODUCT USED FOR UNKNOWN INDICATION
  12. FISH OIL [Concomitant]
     Indication: PRODUCT USED FOR UNKNOWN INDICATION
     Dosage: 2-3 TIMES DAILY
  13. VIT D [Concomitant]
     Indication: PRODUCT USED FOR UNKNOWN INDICATION
  14. GLUCOSAMINE [Concomitant]
     Indication: PRODUCT USED FOR UNKNOWN INDICATION
  15. PALMETTO [Concomitant]
     Indication: PROSTATIC DISORDER

REACTIONS (4)
  - Dyspepsia [Not Recovered/Not Resolved]
  - Swollen tongue [Unknown]
  - Oral discomfort [Unknown]
  - Dysgeusia [Unknown]
